FAERS Safety Report 9230155 (Version 1)
Quarter: 2013Q2

REPORT INFORMATION
  Report Type: Spontaneous
  Country: US (occurrence: US)
  Receive Date: 20130415
  Receipt Date: 20130415
  Transmission Date: 20140414
  Serious: Yes (Other)
  Sender: FDA-Public Use
  Company Number: US-JNJFOC-20130401967

PATIENT
  Sex: Female
  Weight: 25.4 kg

DRUGS (3)
  1. RISPERDAL [Suspect]
     Indication: AUTISM
     Route: 048
     Dates: start: 201203
  2. TRILEPTAL [Suspect]
     Indication: HEAD BANGING
     Route: 065
  3. CLONIDINE [Concomitant]
     Indication: RELAXATION THERAPY
     Route: 065
     Dates: start: 2011, end: 201302

REACTIONS (4)
  - Schizophrenia [Not Recovered/Not Resolved]
  - Head banging [Not Recovered/Not Resolved]
  - Weight increased [Not Recovered/Not Resolved]
  - Abnormal behaviour [Not Recovered/Not Resolved]
